FAERS Safety Report 6220903-5 (Version None)
Quarter: 2009Q2

REPORT INFORMATION
  Report Type: 
  Country: None (occurrence: None)
  Receive Date: 20090610
  Receipt Date: 20090601
  Transmission Date: 20091009
  Serious: Yes (Other)
  Sender: FDA-Public Use
  Company Number: US-PFIZER INC-2009221391

PATIENT
  Sex: Male
  Weight: 77.098 kg

DRUGS (2)
  1. LYRICA [Suspect]
     Indication: DIABETIC NEUROPATHY
     Dosage: UNK
     Route: 048
     Dates: start: 20080101, end: 20080101
  2. INSULIN [Concomitant]
     Dosage: UNK

REACTIONS (2)
  - FALL [None]
  - HYPOAESTHESIA [None]
